FAERS Safety Report 4725080-5 (Version None)
Quarter: 2005Q3

REPORT INFORMATION
  Report Type: 
  Country: None (occurrence: None)
  Receive Date: 20050725
  Receipt Date: 20050719
  Transmission Date: 20060218
  Serious: Yes (Other)
  Sender: FDA-Public Use
  Company Number: 005254

PATIENT
  Sex: Female

DRUGS (3)
  1. MEDROXYPROGESTERONE ACETATE [Suspect]
     Dosage: ORAL
     Route: 048
     Dates: start: 19870101, end: 20010101
  2. PROVERA [Suspect]
     Dosage: ORAL
     Route: 048
     Dates: start: 19870101, end: 20010101
  3. PREMARIN [Suspect]
     Dosage: ORAL
     Route: 048
     Dates: start: 19870101, end: 20010101

REACTIONS (1)
  - BREAST CANCER [None]
